FAERS Safety Report 8849521 (Version 2)
Quarter: 2012Q4

REPORT INFORMATION
  Report Type: 
  Country: US (occurrence: US)
  Receive Date: 20121019
  Receipt Date: 20121109
  Transmission Date: 20130627
  Serious: Yes (Hospitalization)
  Sender: FDA-Public Use
  Company Number: US-PFIZER INC-2012260562

PATIENT
  Age: 52 Year
  Sex: Female
  Weight: 106 kg

DRUGS (1)
  1. ZOLOFT [Suspect]
     Indication: DEPRESSION
     Dosage: 200 mg, daily
     Dates: start: 1980, end: 201209

REACTIONS (3)
  - Epilepsy [Unknown]
  - Convulsion [Unknown]
  - Nervous system disorder [Recovered/Resolved]
